FAERS Safety Report 6441741-4 (Version None)
Quarter: 2009Q4

REPORT INFORMATION
  Report Type: 
  Country: None (occurrence: None)
  Receive Date: 20091116
  Receipt Date: 20091103
  Transmission Date: 20100525
  Serious: Yes (Other)
  Sender: FDA-Public Use
  Company Number: GB-PFIZER INC-2009293467

PATIENT
  Age: 77 Year
  Sex: Female
  Weight: 62 kg

DRUGS (1)
  1. TOLTERODINE TARTRATE [Suspect]
     Indication: HYPERTONIC BLADDER
     Dosage: 4 MG, 4X/DAY
     Route: 048
     Dates: start: 20080805, end: 20081027

REACTIONS (1)
  - LEUKAEMIA [None]
